FAERS Safety Report 4627591-X (Version None)
Quarter: 2005Q2

REPORT INFORMATION
  Report Type: 
  Country: None (occurrence: None)
  Receive Date: 20050405
  Receipt Date: 20050325
  Transmission Date: 20051028
  Serious: Yes (Hospitalization, Other)
  Sender: FDA-Public Use
  Company Number: KII-2005-0015595

PATIENT
  Age: 18 Year
  Sex: Female

DRUGS (5)
  1. OXYCONTIN [Suspect]
     Dosage: SEE IMAGE
     Route: 055
  2. ACETAMINOPHEN [Suspect]
     Dosage: SEE  TEXT
     Route: 048
  3. MARIJUANA (CANNABIS) [Suspect]
     Dosage: INHALATION
     Route: 055
  4. COCAINE (COCAINE) [Suspect]
  5. ACETYLSALICYLIC ACID SRT [Suspect]

REACTIONS (6)
  - BLOOD CALCIUM DECREASED [None]
  - CRYING [None]
  - INTENTIONAL MISUSE [None]
  - POLYSUBSTANCE ABUSE [None]
  - SUICIDAL IDEATION [None]
  - TACHYCARDIA [None]
